FAERS Safety Report 5556517-X (Version None)
Quarter: 2007Q4

REPORT INFORMATION
  Report Type: 
  Country: None (occurrence: None)
  Receive Date: 20071213
  Receipt Date: 20070905
  Transmission Date: 20080405
  Serious: No
  Sender: FDA-Public Use
  Company Number: US-AMGEN-KDL241950

PATIENT
  Sex: Female

DRUGS (8)
  1. ENBREL [Suspect]
     Indication: DRUG USE FOR UNKNOWN INDICATION
     Route: 058
     Dates: start: 20070815
  2. METOPROLOL [Concomitant]
  3. PLAVIX [Concomitant]
  4. ALPRAZOLAM [Concomitant]
  5. DARVOCET [Concomitant]
  6. HYDROCODONE BITARTRATE [Concomitant]
  7. PREVACID [Concomitant]
  8. BENICAR [Concomitant]

REACTIONS (1)
  - INJECTION SITE BRUISING [None]
